FAERS Safety Report 8153617-5 (Version None)
Quarter: 2012Q1

REPORT INFORMATION
  Report Type: 
  Country: None (occurrence: None)
  Receive Date: 20120221
  Receipt Date: 20120213
  Transmission Date: 20120608
  Serious: Yes (Other)
  Sender: FDA-Public Use
  Company Number: US-JNJFOC-2006084411

PATIENT
  Age: 4 Year
  Sex: Female

DRUGS (3)
  1. CHILDREN'S MOTRIN COLD [Suspect]
     Route: 048
  2. CHILDREN'S MOTRIN COLD [Suspect]
     Indication: PRODUCT USED FOR UNKNOWN INDICATION
     Dosage: DAILY DOSE TEXT: UNSPECIFIED
     Route: 048
     Dates: start: 20060706
  3. CHILDREN'S PEDIACARE NIGHTREST COUGH AND COLD [Suspect]
     Indication: PRODUCT USED FOR UNKNOWN INDICATION
     Dosage: DAILY DOSE TEXT: 30 ML ONCE TODAY
     Route: 048
     Dates: start: 20060706, end: 20060706

REACTIONS (3)
  - OVERDOSE [None]
  - NO ADVERSE EVENT [None]
  - WRONG DRUG ADMINISTERED [None]
